FAERS Safety Report 6389571-6 (Version None)
Quarter: 2009Q4

REPORT INFORMATION
  Report Type: 
  Country: None (occurrence: None)
  Receive Date: 20091006
  Receipt Date: 20090925
  Transmission Date: 20100525
  Serious: Yes (Hospitalization)
  Sender: FDA-Public Use
  Company Number: NL-AMGEN-US367342

PATIENT
  Sex: Male

DRUGS (1)
  1. ENBREL [Suspect]
     Indication: ANKYLOSING SPONDYLITIS
     Dosage: UNKNOWN
     Route: 065

REACTIONS (4)
  - ANKYLOSING SPONDYLITIS [None]
  - CONDITION AGGRAVATED [None]
  - LANGERHANS' CELL HISTIOCYTOSIS [None]
  - UVEITIS [None]
